FAERS Safety Report 12549083 (Version 1)
Quarter: 2016Q3

REPORT INFORMATION
  Report Type: Spontaneous
  Country: US (occurrence: US)
  Receive Date: 20160712
  Receipt Date: 20160712
  Transmission Date: 20161109
  Serious: Yes (Other)
  Sender: FDA-Public Use
  Company Number: US-PERRIGO-16US017773

PATIENT
  Age: 20 Year
  Sex: Male
  Weight: 81.63 kg

DRUGS (3)
  1. DEXTROMETHORPHAN HYDROBROMIDE 3 MG/ML 300 [Suspect]
     Active Substance: DEXTROMETHORPHAN HYDROBROMIDE
     Indication: DEPRESSION
  2. ANTIDEPRESSANTS [Concomitant]
     Active Substance: UNSPECIFIED INGREDIENT
     Indication: DEPRESSION
     Dosage: UNK
     Route: 065
  3. DEXTROMETHORPHAN HYDROBROMIDE 3 MG/ML 300 [Suspect]
     Active Substance: DEXTROMETHORPHAN HYDROBROMIDE
     Indication: INTENTIONAL OVERDOSE
     Dosage: 720 MG
     Route: 048
     Dates: start: 20160629, end: 20160629

REACTIONS (7)
  - Paranoia [Recovering/Resolving]
  - Intentional overdose [Recovered/Resolved]
  - Dysphagia [Recovered/Resolved]
  - Hallucination, auditory [Recovered/Resolved]
  - Insomnia [Recovered/Resolved]
  - Feeling jittery [Recovering/Resolving]
  - Heart rate increased [Recovered/Resolved]

NARRATIVE: CASE EVENT DATE: 20160629
